FAERS Safety Report 7091601-3 (Version None)
Quarter: 2010Q4

REPORT INFORMATION
  Report Type: 
  Country: None (occurrence: None)
  Receive Date: 20101109
  Receipt Date: 20101105
  Transmission Date: 20110411
  Serious: Yes (Hospitalization, Other)
  Sender: FDA-Public Use
  Company Number: DE-PFIZER INC-2010141388

PATIENT
  Age: 4 Year
  Sex: Male
  Weight: 23 kg

DRUGS (1)
  1. SOMATROPIN [Suspect]
     Indication: HYPOPITUITARISM
     Dosage: 0.5 MG, 1X/DAY
     Dates: start: 20100616

REACTIONS (2)
  - CRANIOPHARYNGIOMA [None]
  - DISEASE PROGRESSION [None]
